FAERS Safety Report 11109401 (Version 1)
Quarter: 2015Q2

REPORT INFORMATION
  Report Type: Spontaneous
  Country: US (occurrence: US)
  Receive Date: 20150513
  Receipt Date: 20150513
  Transmission Date: 20150821
  Serious: Yes (Other)
  Sender: FDA-Public Use
  Company Number: US-BAYER-2015-214410

PATIENT
  Age: 24 Year
  Sex: Female

DRUGS (2)
  1. MAGNESIUM HYDROXIDE. [Suspect]
     Active Substance: MAGNESIUM HYDROXIDE
     Indication: NERVOUS SYSTEM DISORDER
  2. BETAMETHASONE [Concomitant]
     Active Substance: BETAMETHASONE
     Indication: NERVOUS SYSTEM DISORDER

REACTIONS (2)
  - Maternal exposure during pregnancy [None]
  - Premature labour [None]
